FAERS Safety Report 19046752 (Version 1)
Quarter: 2021Q1

REPORT INFORMATION
  Report Type: Spontaneous
  Country: US (occurrence: US)
  Receive Date: 20210323
  Receipt Date: 20210323
  Transmission Date: 20210420
  Serious: No
  Sender: FDA-Public Use
  Company Number: US-TEVA-2021-US-1872607

PATIENT
  Sex: Female

DRUGS (1)
  1. AJOVY [Suspect]
     Active Substance: FREMANEZUMAB-VFRM
     Dosage: 1.5
     Route: 065
     Dates: start: 202012

REACTIONS (3)
  - Device failure [Unknown]
  - Headache [Unknown]
  - Incorrect dose administered [Unknown]
